FAERS Safety Report 5201128-9 (Version None)
Quarter: 2007Q1

REPORT INFORMATION
  Report Type: 
  Country: None (occurrence: None)
  Receive Date: 20070103
  Receipt Date: 20061221
  Transmission Date: 20070707
  Serious: Yes (Death, Hospitalization)
  Sender: FDA-Public Use
  Company Number: 234338

PATIENT
  Age: 60 Year
  Sex: Male
  Weight: 61 kg

DRUGS (4)
  1. AVASTIN [Suspect]
     Indication: COLORECTAL CANCER METASTATIC
     Dosage: 957.5 MG, Q3W, INTRAVENOUS
     Route: 042
     Dates: start: 20060928
  2. CAPECITABINE (CAPECITABINE) [Suspect]
     Indication: COLORECTAL CANCER METASTATIC
     Dosage: 1300 MG, BID, ORAL
     Route: 048
     Dates: start: 20060928
  3. OXALIPLATIN [Suspect]
     Indication: COLORECTAL CANCER
     Dosage: 234 MG, Q3W, INTRAVENOUS
     Route: 042
     Dates: start: 20060928
  4. INDOMETHACIN [Concomitant]

REACTIONS (4)
  - INTESTINAL OBSTRUCTION [None]
  - INTESTINAL PERFORATION [None]
  - NEOPLASM PROGRESSION [None]
  - SHOCK [None]
